FAERS Safety Report 17059623 (Version 1)
Quarter: 2019Q4

REPORT INFORMATION
  Report Type: Spontaneous
  Country: US (occurrence: US)
  Receive Date: 20191121
  Receipt Date: 20191121
  Transmission Date: 20200122
  Serious: Yes (Death)
  Sender: FDA-Public Use
  Company Number: None

PATIENT
  Age: 56 Year
  Sex: Female

DRUGS (2)
  1. CYANOCOBALAM [Suspect]
     Active Substance: CYANOCOBALAMIN
     Indication: VITAMIN B12 DEFICIENCY
     Dosage: ?          OTHER FREQUENCY:ONCE MONTHLY;?
     Dates: start: 20140324
  2. CYANOCOBALAM [Concomitant]
     Active Substance: CYANOCOBALAMIN
     Dates: start: 20140324, end: 20191027

REACTIONS (1)
  - Neoplasm malignant [None]

NARRATIVE: CASE EVENT DATE: 20191120
